FAERS Safety Report 7259210-0 (Version None)
Quarter: 2011Q1

REPORT INFORMATION
  Report Type: 
  Country: None (occurrence: None)
  Receive Date: 20110129
  Receipt Date: 20100811
  Transmission Date: 20110831
  Serious: No
  Sender: FDA-Public Use
  Company Number: US-ABBOTT-10P-163-0664087-00

PATIENT
  Sex: Female
  Weight: 47.67 kg

DRUGS (9)
  1. NAPROSYN [Concomitant]
     Indication: RHEUMATOID ARTHRITIS
  2. AMITRIPTYLINE HCL [Concomitant]
     Indication: DEPRESSION
  3. AMITRIPTYLINE HCL [Concomitant]
     Indication: SLEEP DISORDER THERAPY
  4. OMEPRAZOLE [Concomitant]
     Indication: GASTROOESOPHAGEAL REFLUX DISEASE
  5. UNKNOWN MEDICATION [Concomitant]
     Indication: NAUSEA
  6. HUMIRA [Suspect]
     Indication: RHEUMATOID ARTHRITIS
     Dates: start: 20090101
  7. NAPROSYN [Concomitant]
     Dosage: 375 MG IN EVENING   500 MG IN MORNING
  8. LEFLUNOMIDE [Concomitant]
     Indication: RHEUMATOID ARTHRITIS
  9. AMITRIPTYLINE HCL [Concomitant]
     Indication: PAIN

REACTIONS (8)
  - MOBILITY DECREASED [None]
  - ERYTHEMA [None]
  - ABDOMINAL PAIN UPPER [None]
  - EATING DISORDER [None]
  - HYPOPHAGIA [None]
  - PYREXIA [None]
  - NASOPHARYNGITIS [None]
  - WRONG TECHNIQUE IN DRUG USAGE PROCESS [None]
